FAERS Safety Report 10298152 (Version 1)
Quarter: 2014Q3

REPORT INFORMATION
  Report Type: Spontaneous
  Country: US (occurrence: US)
  Receive Date: 20140711
  Receipt Date: 20140711
  Transmission Date: 20150326
  Serious: No
  Sender: FDA-Public Use
  Company Number: US-GLAXOSMITHKLINE-A1052264A

PATIENT
  Age: 6 Year
  Sex: Male

DRUGS (3)
  1. FLOVENT [Suspect]
     Active Substance: FLUTICASONE PROPIONATE
     Indication: ASTHMA
     Dosage: 2PUFF VARIABLE DOSE
     Route: 055
     Dates: start: 2012, end: 20131120
  2. FLOVENT [Suspect]
     Active Substance: FLUTICASONE PROPIONATE
     Route: 055
  3. NO CONCURRENT MEDICATION [Concomitant]
     Active Substance: UNSPECIFIED INGREDIENT

REACTIONS (4)
  - Excessive eye blinking [Unknown]
  - Abnormal behaviour [Recovering/Resolving]
  - Obsessive-compulsive disorder [Unknown]
  - Irritability [Unknown]

NARRATIVE: CASE EVENT DATE: 201311
